FAERS Safety Report 6906886-0 (Version None)
Quarter: 2010Q3

REPORT INFORMATION
  Report Type: 
  Country: None (occurrence: None)
  Receive Date: 20100804
  Receipt Date: 20100716
  Transmission Date: 20110219
  Serious: Yes (Other)
  Sender: FDA-Public Use
  Company Number: PHHY2009JP54982

PATIENT
  Age: 61 Year
  Sex: Male

DRUGS (7)
  1. VOLTAREN [Suspect]
     Indication: BACK PAIN
     Dosage: 50 MG, ONCE/SINGLE
     Route: 054
  2. LOXONIN [Concomitant]
     Dosage: 3 DF, UNK
     Route: 048
     Dates: start: 20091204, end: 20091206
  3. VITANEURIN [Concomitant]
     Dosage: 2 DF, UNK
     Route: 048
     Dates: start: 20091204
  4. LAC B [Concomitant]
     Dosage: 3 G, UNK
     Route: 048
     Dates: start: 20091204, end: 20091206
  5. HUSTAGIN [Concomitant]
     Dosage: 6 G, UNK
  6. BROCIN [Concomitant]
     Dosage: 3 G, UNK
     Route: 048
     Dates: start: 20091204, end: 20091206
  7. ASVERIN [Concomitant]
     Dosage: 3 G, UNK
     Route: 048
     Dates: start: 20091204, end: 20091206

REACTIONS (5)
  - ALTERED STATE OF CONSCIOUSNESS [None]
  - DEMENTIA [None]
  - FALL [None]
  - LISTLESS [None]
  - MEMORY IMPAIRMENT [None]
